FAERS Safety Report 7006225-3 (Version None)
Quarter: 2010Q3

REPORT INFORMATION
  Report Type: 
  Country: None (occurrence: None)
  Receive Date: 20100917
  Receipt Date: 20100903
  Transmission Date: 20110219
  Serious: Yes (Death, Other)
  Sender: FDA-Public Use
  Company Number: 010978

PATIENT

DRUGS (3)
  1. BUSULFEX [Suspect]
     Indication: BONE MARROW CONDITIONING REGIMEN
     Dosage: 16 MG/KG, DAILY DOSE,
  2. MELPHALAN HYDROCHLORIDE [Concomitant]
  3. CLONAZEPAM [Concomitant]

REACTIONS (6)
  - ENGRAFTMENT SYNDROME [None]
  - EWING'S SARCOMA [None]
  - FUNGAL INFECTION [None]
  - MUCOSAL INFLAMMATION [None]
  - MULTI-ORGAN FAILURE [None]
  - SEPTIC SHOCK [None]
